FAERS Safety Report 20159859 (Version 10)
Quarter: 2023Q2

REPORT INFORMATION
  Report Type: Other
  Country: CA (occurrence: CA)
  Receive Date: 20211208
  Receipt Date: 20230410
  Transmission Date: 20230722
  Serious: Yes (Hospitalization, Other)
  Sender: FDA-Public Use
  Company Number: CA-002147023-NVSC2020CA166934

PATIENT
  Age: 73 Year
  Sex: Male

DRUGS (19)
  1. XOLAIR [Suspect]
     Active Substance: OMALIZUMAB
     Indication: Asthma
     Route: 058
     Dates: start: 20200521
  2. XOLAIR [Suspect]
     Active Substance: OMALIZUMAB
     Dosage: 225 MG, BIW (STRENGTH 75 MG+150 MG)
     Route: 058
  3. XOLAIR [Suspect]
     Active Substance: OMALIZUMAB
     Route: 058
     Dates: start: 20210513
  4. XOLAIR [Suspect]
     Active Substance: OMALIZUMAB
     Route: 065
  5. XOLAIR [Suspect]
     Active Substance: OMALIZUMAB
     Route: 065
  6. XOLAIR [Suspect]
     Active Substance: OMALIZUMAB
     Route: 065
     Dates: start: 20220318
  7. XOLAIR [Suspect]
     Active Substance: OMALIZUMAB
     Route: 065
  8. XOLAIR [Suspect]
     Active Substance: OMALIZUMAB
     Route: 065
  9. XOLAIR [Suspect]
     Active Substance: OMALIZUMAB
     Dosage: UNK (ASSOCIATED INJECTION DATE)
     Route: 058
     Dates: start: 20220513
  10. XOLAIR [Suspect]
     Active Substance: OMALIZUMAB
     Dosage: 225 MG, BIW
     Route: 058
     Dates: start: 20230209
  11. PULMICORT TURBUHALER [Concomitant]
     Active Substance: BUDESONIDE
     Indication: Sinus disorder
     Route: 045
     Dates: start: 2001
  12. SPIRIVA [Concomitant]
     Active Substance: TIOTROPIUM BROMIDE MONOHYDRATE
     Indication: Asthma
     Dosage: 2 DF, QD
     Route: 055
  13. VENTOLIN [Concomitant]
     Active Substance: ALBUTEROL SULFATE
     Indication: Asthma
     Dosage: 2 DF, PRN
     Route: 055
  14. PREDNISONE [Concomitant]
     Active Substance: PREDNISONE
     Dates: start: 20190831
  15. MONTELUKAST [Concomitant]
     Active Substance: MONTELUKAST SODIUM
     Indication: Asthma
     Dosage: UNK UNK, QD
     Route: 048
  16. ALFUZOSIN [Concomitant]
     Active Substance: ALFUZOSIN
     Indication: Prostate infection
     Dosage: UNK UNK, QD
     Route: 048
  17. BREO ELLIPTA [Concomitant]
     Active Substance: FLUTICASONE FUROATE\VILANTEROL TRIFENATATE
     Indication: Product used for unknown indication
     Dosage: 1 UNK, QD
     Route: 055
     Dates: start: 201907
  18. SYMBICORT [Concomitant]
     Active Substance: BUDESONIDE\FORMOTEROL FUMARATE DIHYDRATE
     Indication: Asthma
     Dosage: 2 DF, BID
     Route: 055
     Dates: end: 201907
  19. BREO ELLIPTA [Concomitant]
     Active Substance: FLUTICASONE FUROATE\VILANTEROL TRIFENATATE

REACTIONS (21)
  - Pneumonia [Recovering/Resolving]
  - Pericarditis [Recovering/Resolving]
  - Pancreatitis [Recovering/Resolving]
  - Secretion discharge [Unknown]
  - Myocardial infarction [Unknown]
  - Increased bronchial secretion [Unknown]
  - Malaise [Unknown]
  - Pneumonia fungal [Unknown]
  - Pneumonia bacterial [Unknown]
  - Blood pressure abnormal [Unknown]
  - Vital functions abnormal [Recovered/Resolved]
  - Hypotension [Unknown]
  - Haemoglobin increased [Unknown]
  - Dyspnoea [Unknown]
  - COVID-19 [Recovered/Resolved]
  - Sputum increased [Unknown]
  - Cough [Unknown]
  - Dizziness [Unknown]
  - Incorrect dose administered [Unknown]
  - Product dose omission issue [Unknown]
  - Product prescribing error [Unknown]

NARRATIVE: CASE EVENT DATE: 20221001
